FAERS Safety Report 6262235-5 (Version None)
Quarter: 2009Q3

REPORT INFORMATION
  Report Type: 
  Country: None (occurrence: None)
  Receive Date: 20090708
  Receipt Date: 20090708
  Transmission Date: 20100115
  Serious: Yes (Disabling)
  Sender: FDA-Public Use
  Company Number: None

PATIENT
  Age: 67 Year
  Sex: Female
  Weight: 83.9154 kg

DRUGS (2)
  1. ZICAM GEL SWABS [Suspect]
     Indication: NASOPHARYNGITIS
     Dosage: 1 SWAB ONCE DAILY NOSE
     Route: 045
     Dates: start: 20080608, end: 20080610
  2. ZICAM THROAT SPRAY [Suspect]
     Dosage: SPRAY ONCE DAILY THROAT
     Dates: start: 20080608, end: 20080610

REACTIONS (2)
  - AGEUSIA [None]
  - ANOSMIA [None]
